FAERS Safety Report 6027440-1 (Version None)
Quarter: 2009Q1

REPORT INFORMATION
  Report Type: 
  Country: None (occurrence: None)
  Receive Date: 20090105
  Receipt Date: 20081230
  Transmission Date: 20090719
  Serious: Yes (Other)
  Sender: FDA-Public Use
  Company Number: ES-MERCK-0812ESP00052

PATIENT
  Age: 86 Year
  Sex: Female

DRUGS (15)
  1. PRIMAXIN [Suspect]
     Indication: STAPHYLOCOCCAL INFECTION
     Route: 042
     Dates: start: 20080929, end: 20081006
  2. DIGOXIN [Concomitant]
     Route: 065
  3. ACETAMINOPHEN [Concomitant]
     Route: 065
  4. ENALAPRIL MALEATE [Concomitant]
     Route: 065
  5. OMEPRAZOLE [Concomitant]
     Route: 065
  6. ACFOL [Concomitant]
     Route: 065
  7. ADIRO [Concomitant]
     Route: 065
  8. EMCONCOR [Concomitant]
     Route: 065
  9. EMPORTAL [Concomitant]
     Route: 065
  10. EUTIROX [Concomitant]
     Route: 065
  11. FERRO SANOL [Concomitant]
     Route: 065
  12. LEXATIN [Concomitant]
     Route: 065
  13. SEROPRAM [Suspect]
     Indication: DEPRESSION
     Route: 048
     Dates: start: 20070101, end: 20081003
  14. SINTROM [Concomitant]
     Route: 065
  15. ZYVOXID [Suspect]
     Indication: STAPHYLOCOCCAL INFECTION
     Route: 042
     Dates: start: 20080801, end: 20081003

REACTIONS (4)
  - DEPRESSED LEVEL OF CONSCIOUSNESS [None]
  - DRUG INTERACTION [None]
  - GRAND MAL CONVULSION [None]
  - SEROTONIN SYNDROME [None]
